FAERS Safety Report 5989506-1 (Version None)
Quarter: 2008Q4

REPORT INFORMATION
  Report Type: 
  Country: None (occurrence: None)
  Receive Date: 20081208
  Receipt Date: 20081201
  Transmission Date: 20090506
  Serious: No
  Sender: FDA-Public Use
  Company Number: APP200801192

PATIENT
  Age: 52 Year
  Sex: Male
  Weight: 86.1834 kg

DRUGS (3)
  1. HEPARIN SODIUM INJECTION [Suspect]
     Indication: CYSTITIS
     Dosage: SEE IMAGE
     Route: 043
     Dates: start: 20081130
  2. HEPARIN SODIUM INJECTION [Suspect]
     Indication: CYSTITIS
     Dosage: SEE IMAGE
     Route: 043
     Dates: start: 20081130
  3. SINGULAIR [Concomitant]

REACTIONS (5)
  - BURNING SENSATION [None]
  - OFF LABEL USE [None]
  - PELVIC PAIN [None]
  - PRODUCT QUALITY ISSUE [None]
  - REACTION TO DRUG EXCIPIENTS [None]
